FAERS Safety Report 13597699 (Version 1)
Quarter: 2017Q2

REPORT INFORMATION
  Report Type: Spontaneous
  Country: US (occurrence: US)
  Receive Date: 20170531
  Receipt Date: 20170531
  Transmission Date: 20170830
  Serious: Yes (Disabling)
  Sender: FDA-Public Use
  Company Number: None

PATIENT
  Age: 36 Year
  Sex: Female
  Weight: 62.1 kg

DRUGS (1)
  1. OPTIMARK [Suspect]
     Active Substance: GADOVERSETAMIDE
     Route: 042
     Dates: start: 20150219

REACTIONS (21)
  - Myalgia [None]
  - Formication [None]
  - Asthenia [None]
  - Vitreous floaters [None]
  - Peripheral coldness [None]
  - Pain [None]
  - Muscle twitching [None]
  - Dizziness [None]
  - Fatigue [None]
  - Cold sweat [None]
  - Dysgeusia [None]
  - Muscular weakness [None]
  - Rash [None]
  - Palpitations [None]
  - Feeling abnormal [None]
  - Head discomfort [None]
  - Eye pain [None]
  - Paraesthesia [None]
  - Muscle spasms [None]
  - Cognitive disorder [None]
  - Dysphagia [None]

NARRATIVE: CASE EVENT DATE: 20150219
